FAERS Safety Report 19583106 (Version 3)
Quarter: 2021Q3

REPORT INFORMATION
  Report Type: Spontaneous
  Country: US (occurrence: US)
  Receive Date: 20210720
  Receipt Date: 20210825
  Transmission Date: 20211014
  Serious: No
  Sender: FDA-Public Use
  Company Number: US-LUPIN PHARMACEUTICALS INC.-2021-11911

PATIENT
  Age: 55 Year
  Sex: Male
  Weight: 99.77 kg

DRUGS (2)
  1. FENOFIBRATE TABLETS USP, 160 MG [Suspect]
     Active Substance: FENOFIBRATE
     Dosage: 1 DOSAGE FORM, QD
     Route: 048
     Dates: start: 20210601
  2. FENOFIBRATE TABLETS USP, 160 MG [Suspect]
     Active Substance: FENOFIBRATE
     Indication: BLOOD TRIGLYCERIDES INCREASED
     Dosage: 1 DOSAGE FORM, QD
     Route: 048
     Dates: start: 2021

REACTIONS (4)
  - No adverse event [Unknown]
  - Product use complaint [Unknown]
  - Poor quality product administered [Unknown]
  - Product shape issue [Unknown]

NARRATIVE: CASE EVENT DATE: 2021
